FAERS Safety Report 6039379-6 (Version None)
Quarter: 2009Q1

REPORT INFORMATION
  Report Type: 
  Country: None (occurrence: None)
  Receive Date: 20090114
  Receipt Date: 20081230
  Transmission Date: 20090719
  Serious: Yes (Life-Threatening, Hospitalization, Other)
  Sender: FDA-Public Use
  Company Number: 2009AL000104

PATIENT
  Sex: Male

DRUGS (12)
  1. DIAZEPAM TABLETS [Suspect]
     Indication: INSOMNIA
     Dosage: 5 MG; QD; PO
     Route: 048
     Dates: start: 20080522, end: 20081204
  2. DAPSONE [Concomitant]
  3. ATRIPLA [Concomitant]
  4. ETHAMBUTOL [Concomitant]
  5. RIFABUTIN [Concomitant]
  6. CLARITHROMYCIN [Concomitant]
  7. EFAVIRENZ [Concomitant]
  8. TRUVADA [Concomitant]
  9. TERBINAFINE HCL [Concomitant]
  10. CETIRIZINE HCL [Concomitant]
  11. ALBUTEROL [Concomitant]
  12. BECLOMETASONE [Concomitant]

REACTIONS (6)
  - ASTHENIA [None]
  - BLOOD CREATININE INCREASED [None]
  - CARDIAC ARREST [None]
  - HAEMODIALYSIS [None]
  - HYPERKALAEMIA [None]
  - LOSS OF CONSCIOUSNESS [None]
